FAERS Safety Report 25671692 (Version 4)
Quarter: 2025Q4

REPORT INFORMATION
  Report Type: Report from Study
  Country: CA (occurrence: CA)
  Receive Date: 20250812
  Receipt Date: 20251019
  Transmission Date: 20260117
  Serious: Yes (Other)
  Sender: IPSEN BIOPHARMACEUTICALS, INC.
  Company Number: CA-IPSEN Group, Research and Development-2025-19757

PATIENT
  Age: 62 Year
  Sex: Female

DRUGS (16)
  1. LANREOTIDE ACETATE [Suspect]
     Active Substance: LANREOTIDE ACETATE
     Indication: Gastroenteropancreatic neuroendocrine tumour disease
     Dosage: BATCH NUMBER: 016322, 018912?EXPIRY DATE:30-JAN-2028, 28-02-2028,
     Route: 058
     Dates: start: 20250710
  2. VYVANSE [Suspect]
     Active Substance: LISDEXAMFETAMINE DIMESYLATE
     Indication: Product used for unknown indication
     Dosage: VYVANSE 60 MG 1 CO DIE
     Route: 048
     Dates: start: 202507
  3. DESONIDE [Concomitant]
     Active Substance: DESONIDE
     Dosage: DESONIDE 0.05 % TOP CREAM BID
  4. Esomeprazole Plaq [Concomitant]
     Dosage: ESOMEPRAZOLE PLAQ 40 MG 1 CO BID
     Route: 048
  5. Telmisartan Plaq [Concomitant]
     Dosage: TELMISARTAN PLAQ 80 MG 2 CO DIE
     Route: 048
  6. AMLODIPINE [Concomitant]
     Active Substance: AMLODIPINE BESYLATE
     Dosage: AMLODIPINE 10 MG 2 CO DIE
     Route: 048
  7. INDAPAMIDE [Concomitant]
     Active Substance: INDAPAMIDE
     Dosage: INDAPAMIDE 1.25 1 CO DIE
     Route: 048
  8. EZETIMIBE [Concomitant]
     Active Substance: EZETIMIBE
     Dosage: EZETIMIBE PLAQ?10 MG 1 CO HS
     Route: 048
  9. JAMP D GEL [Concomitant]
     Dosage: JAMP D GEL 1 CO DIE
     Route: 048
  10. M Cal [Concomitant]
     Dosage: M CAL 500 MG 1 CO DIE
     Route: 048
  11. ALVESCO [Concomitant]
     Active Substance: CICLESONIDE
     Indication: Asthma
     Dosage: 200 MCG 2 INH DIE INCREASED AT 2 INH IF ASTHMA IS NOT CONTROLLED
  12. Jamp Vit B12 [Concomitant]
     Dosage: VIT B12 1 CO TWICE A WEEK
     Route: 048
  13. CLOTRIMAZOLE [Concomitant]
     Active Substance: CLOTRIMAZOLE
     Dosage: CLOTRIMAZOLE 1 % BID IF INTRIGO PRN
  14. Montelukast Plaw [Concomitant]
     Dosage: MONTELUKAST PLAW 10 MG 2 CO HS
     Route: 048
  15. VENTOLIN [Concomitant]
     Active Substance: ALBUTEROL SULFATE
     Dosage: VENTOLIN HFA 100 MCG 2 INH Q 4 HRS PRN
  16. Ac. Salicylique Ong [Concomitant]
     Dosage: AC. SALICYLIQUE ONG 40% APPLIED ONCE DAILY

REACTIONS (9)
  - Mental disorder [Recovered/Resolved]
  - Diarrhoea [Recovered/Resolved]
  - Abdominal pain [Recovered/Resolved]
  - Headache [Recovered/Resolved]
  - Insomnia [Recovered/Resolved]
  - Diarrhoea [Unknown]
  - Abdominal pain [Recovered/Resolved]
  - Headache [Recovered/Resolved]
  - Haemorrhage [Unknown]

NARRATIVE: CASE EVENT DATE: 20250701
